FAERS Safety Report 19468763 (Version 1)
Quarter: 2021Q2

REPORT INFORMATION
  Report Type: Spontaneous
  Country: US (occurrence: US)
  Receive Date: 20210629
  Receipt Date: 20210629
  Transmission Date: 20210717
  Serious: No
  Sender: FDA-Public Use
  Company Number: US-AMGEN-USASP2021095241

PATIENT
  Sex: Male

DRUGS (5)
  1. VITAMIN D3 [Concomitant]
     Active Substance: CHOLECALCIFEROL
     Dosage: 5000 UNIT, QD
  2. PROLIA [Suspect]
     Active Substance: DENOSUMAB
     Indication: OFF LABEL USE
     Dosage: UNK UNK, Q6MO
     Route: 065
  3. CALCIUM [Concomitant]
     Active Substance: CALCIUM
     Dosage: 1000 MILLIGRAM, QD
  4. PROLIA [Suspect]
     Active Substance: DENOSUMAB
     Indication: LEUKAEMIA
     Dosage: UNK UNK, QMO
     Route: 065
  5. MAGNESIUM [Concomitant]
     Active Substance: MAGNESIUM

REACTIONS (7)
  - Off label use [Unknown]
  - Arthritis [Unknown]
  - Hyperaesthesia teeth [Unknown]
  - Mastication disorder [Unknown]
  - Paranasal sinus inflammation [Recovering/Resolving]
  - Spinal disorder [Unknown]
  - Pain in jaw [Unknown]
